FAERS Safety Report 21756094 (Version 1)
Quarter: 2022Q4

REPORT INFORMATION
  Report Type: Spontaneous
  Country: EG (occurrence: EG)
  Receive Date: 20221220
  Receipt Date: 20221220
  Transmission Date: 20230112
  Serious: Yes (Hospitalization)
  Sender: FDA-Public Use
  Company Number: EG-ELI_LILLY_AND_COMPANY-EG202210008370

PATIENT
  Age: 27 Month
  Sex: Female

DRUGS (3)
  1. HUMALOG [Suspect]
     Active Substance: INSULIN LISPRO
     Indication: Diabetes mellitus
     Dosage: 3 U, QID (3 UNITS POST EVERY MEAL)
     Route: 058
     Dates: start: 20221001
  2. HUMALOG [Suspect]
     Active Substance: INSULIN LISPRO
     Indication: Diabetes mellitus
     Dosage: UNK, OTHER (5 TIMES PER DAY)
     Route: 058
     Dates: start: 202211
  3. TRESIBA [Concomitant]
     Active Substance: INSULIN DEGLUDEC
     Indication: Diabetes mellitus
     Dosage: UNK, DAILY
     Route: 065
     Dates: start: 20221001

REACTIONS (6)
  - Abscess neck [Recovered/Resolved]
  - Blood glucose fluctuation [Recovered/Resolved]
  - Decreased appetite [Recovering/Resolving]
  - Tonsillar disorder [Unknown]
  - Wrong technique in product usage process [Not Recovered/Not Resolved]
  - Off label use [Unknown]

NARRATIVE: CASE EVENT DATE: 20221001
